FAERS Safety Report 6930042-3 (Version None)
Quarter: 2010Q3

REPORT INFORMATION
  Report Type: 
  Country: None (occurrence: None)
  Receive Date: 20100818
  Receipt Date: 20100811
  Transmission Date: 20110219
  Serious: Yes (Death, Hospitalization)
  Sender: FDA-Public Use
  Company Number: DK-AMGEN-KDC421900

PATIENT
  Age: 66 Year

DRUGS (21)
  1. VECTIBIX [Suspect]
     Indication: COLORECTAL CANCER
     Route: 042
     Dates: start: 20100622, end: 20100622
  2. IRINOTECAN HCL [Suspect]
     Dates: start: 20090924, end: 20100520
  3. ZOFRAN [Concomitant]
     Dates: start: 20090218
  4. ATROPIN [Concomitant]
     Dates: start: 20090924
  5. PREDNISOLONE [Concomitant]
     Dates: start: 20090402
  6. PRIMPERAN TAB [Concomitant]
     Dates: start: 20090412
  7. METFORMIN HCL [Concomitant]
     Dates: start: 20090918
  8. IMODIUM [Concomitant]
     Dates: start: 20090402
  9. FURIX [Concomitant]
     Dates: start: 20090220
  10. NAPROXEN [Concomitant]
     Dates: start: 20090218
  11. PINEX [Concomitant]
     Dates: start: 20090218
  12. GABAPENTIN [Concomitant]
     Dates: start: 20100218
  13. METRONIDAZOLE [Concomitant]
     Dates: start: 20090218
  14. MULTI-VITAMINS [Concomitant]
     Dates: start: 20090220
  15. MAGNESIA [Concomitant]
     Dates: start: 20100402
  16. VOGALENE [Concomitant]
     Dates: start: 20090402
  17. NULYTELY [Concomitant]
     Dates: start: 20100408
  18. NOVOMIX [Concomitant]
     Dates: start: 20100311, end: 20100630
  19. MORFIN [Concomitant]
     Dates: start: 20090218
  20. BUPIVACAINE HCL [Concomitant]
     Dates: start: 20100218
  21. CEFUROXIME [Concomitant]
     Dates: start: 20100218

REACTIONS (6)
  - DEATH [None]
  - DIARRHOEA [None]
  - NEUTROPENIA [None]
  - PULMONARY OEDEMA [None]
  - PYREXIA [None]
  - RENAL FAILURE [None]
